FAERS Safety Report 24073807 (Version 1)
Quarter: 2024Q3

REPORT INFORMATION
  Report Type: Spontaneous
  Country: TW (occurrence: TW)
  Receive Date: 20240710
  Receipt Date: 20240710
  Transmission Date: 20241017
  Serious: Yes (Other)
  Sender: BIOCRYST PHARMACEUTICALS
  Company Number: TW-BIOCRYST PHARMACEUTICALS, INC.-2024BCR00712

PATIENT
  Age: 25 Year
  Sex: Male

DRUGS (1)
  1. RAPIACTA [Suspect]
     Active Substance: PERAMIVIR
     Indication: Influenza
     Dosage: 1 DOSAGE FORM, ONCE
     Route: 042
     Dates: start: 20240630, end: 20240630

REACTIONS (2)
  - Dizziness [Recovered/Resolved]
  - Muscle spasms [Recovered/Resolved]

NARRATIVE: CASE EVENT DATE: 20240630
